FAERS Safety Report 20031939 (Version 2)
Quarter: 2021Q4

REPORT INFORMATION
  Report Type: Report from Study
  Country: BR (occurrence: BR)
  Receive Date: 20211103
  Receipt Date: 20211123
  Transmission Date: 20220303
  Serious: Yes (Other)
  Sender: FDA-Public Use
  Company Number: BR-ABBVIE-21K-020-4136599-00

PATIENT
  Sex: Female
  Weight: 130 kg

DRUGS (2)
  1. RINVOQ [Suspect]
     Active Substance: UPADACITINIB
     Indication: Rheumatoid arthritis
     Route: 048
     Dates: start: 202105
  2. CALCIODEX [Concomitant]
     Indication: Gastric operation
     Route: 048

REACTIONS (9)
  - Thrombosis [Not Recovered/Not Resolved]
  - Hypertension [Unknown]
  - Pruritus [Unknown]
  - Peripheral swelling [Unknown]
  - Limb injury [Unknown]
  - Pain in extremity [Unknown]
  - Skin discolouration [Unknown]
  - Inflammation [Unknown]
  - Burning sensation [Unknown]
